FAERS Safety Report 9559389 (Version 2)
Quarter: 2013Q4

REPORT INFORMATION
  Report Type: Spontaneous
  Country: JP (occurrence: JP)
  Receive Date: 20130927
  Receipt Date: 20131008
  Transmission Date: 20140711
  Serious: Yes (Hospitalization)
  Sender: FDA-Public Use
  Company Number: JP-ASTRAZENECA-2013SE71843

PATIENT
  Sex: Male

DRUGS (10)
  1. ZOLADEX [Suspect]
     Indication: PROSTATE CANCER
     Route: 058
     Dates: start: 20130802
  2. CASODEX [Suspect]
     Indication: PROSTATE CANCER
     Route: 048
     Dates: start: 20130705, end: 20130831
  3. OPALMON [Concomitant]
     Route: 065
  4. MENESIT [Concomitant]
     Route: 065
  5. URALYT-U [Concomitant]
     Route: 065
  6. PERSANTIN [Concomitant]
     Route: 065
  7. SERMION [Concomitant]
     Route: 065
  8. KETAS [Concomitant]
     Route: 065
  9. LIVALO [Concomitant]
     Route: 065
  10. MILTAX PAP [Concomitant]
     Route: 062

REACTIONS (1)
  - Hepatitis fulminant [Recovered/Resolved]
